FAERS Safety Report 6759984-9 (Version None)
Quarter: 2010Q2

REPORT INFORMATION
  Report Type: 
  Country: None (occurrence: None)
  Receive Date: 20100608
  Receipt Date: 20100602
  Transmission Date: 20101027
  Serious: Yes (Hospitalization, Other)
  Sender: FDA-Public Use
  Company Number: US-ASTRAZENECA-2006UW07065

PATIENT
  Age: 52 Year
  Sex: Male
  Weight: 166 kg

DRUGS (14)
  1. SEROQUEL [Suspect]
     Indication: INSOMNIA
     Dosage: 100-300 MG
     Route: 048
     Dates: start: 20030801, end: 20050101
  2. SEROQUEL [Suspect]
     Dosage: 25 MG - 300 MG
     Route: 048
     Dates: start: 20030905
  3. COUMADIN [Concomitant]
     Dosage: 2MG - 4MG DAILY
     Route: 048
  4. RENAGEL [Concomitant]
     Dosage: 400MG -4000 MG WITH EACH MEAL
     Route: 048
     Dates: start: 20031205
  5. ZESTRIL [Concomitant]
     Dosage: 5MG - 20MG  DAILY
     Route: 048
     Dates: start: 20021230
  6. LASIX [Concomitant]
     Dosage: 20MG - 300MG
     Route: 048
     Dates: start: 20030521
  7. PLAVIX [Concomitant]
     Route: 048
     Dates: start: 20061130
  8. XANAX [Concomitant]
     Dosage: 0.5MG - 3 MG
     Route: 048
     Dates: start: 20041202
  9. ATIVAN [Concomitant]
     Dates: start: 20030504
  10. COREG [Concomitant]
     Dosage: 3.125 MG - 6.25 MG
     Route: 048
  11. NEXIUM [Concomitant]
     Dosage: 40 MG - 80 MG
     Route: 048
  12. AMBIEN [Concomitant]
     Dosage: 5 MG - 20 MG AT NIGHT
     Route: 048
     Dates: start: 20040416
  13. LEXAPRO [Concomitant]
     Route: 048
     Dates: start: 20030915
  14. PROTONIX [Concomitant]
     Route: 048

REACTIONS (5)
  - DIABETES MELLITUS [None]
  - DIABETIC NEPHROPATHY [None]
  - PANCREATITIS [None]
  - PANCREATITIS CHRONIC [None]
  - TYPE 2 DIABETES MELLITUS [None]
